FAERS Safety Report 7158022-6 (Version None)
Quarter: 2010Q4

REPORT INFORMATION
  Report Type: 
  Country: None (occurrence: None)
  Receive Date: 20101214
  Receipt Date: 20100413
  Transmission Date: 20110411
  Serious: No
  Sender: FDA-Public Use
  Company Number: US-ASTRAZENECA-2010SE16521

PATIENT
  Age: 57 Year
  Sex: Male
  Weight: 89.4 kg

DRUGS (2)
  1. CRESTOR [Suspect]
     Route: 048
     Dates: start: 20070101
  2. CRESTOR [Suspect]
     Route: 048

REACTIONS (4)
  - ANXIETY [None]
  - CHEST DISCOMFORT [None]
  - EAR INFECTION [None]
  - INSOMNIA [None]
